FAERS Safety Report 20585751 (Version 4)
Quarter: 2022Q2

REPORT INFORMATION
  Report Type: Report from Study
  Country: ES (occurrence: ES)
  Receive Date: 20220312
  Receipt Date: 20220412
  Transmission Date: 20220721
  Serious: Yes (Hospitalization)
  Sender: FDA-Public Use
  Company Number: ES-ABBVIE-22K-144-4309339-00

PATIENT
  Sex: Male
  Weight: 84 kg

DRUGS (3)
  1. CARBIDOPA\LEVODOPA [Suspect]
     Active Substance: CARBIDOPA\LEVODOPA
     Indication: Parkinson^s disease
     Route: 050
     Dates: start: 20210506, end: 2022
  2. CARBIDOPA\LEVODOPA [Suspect]
     Active Substance: CARBIDOPA\LEVODOPA
     Route: 050
  3. CARBIDOPA\LEVODOPA [Suspect]
     Active Substance: CARBIDOPA\LEVODOPA
     Route: 050

REACTIONS (18)
  - Abdominal pain upper [Recovered/Resolved]
  - Stomach mass [Recovered/Resolved]
  - Scratch [Recovered/Resolved]
  - Headache [Recovering/Resolving]
  - Propulsive gait [Unknown]
  - Product administration error [Unknown]
  - Intestinal obstruction [Recovering/Resolving]
  - Gastrointestinal inflammation [Recovering/Resolving]
  - Colitis [Recovering/Resolving]
  - Constipation [Not Recovered/Not Resolved]
  - Loss of personal independence in daily activities [Not Recovered/Not Resolved]
  - Clumsiness [Not Recovered/Not Resolved]
  - Fear [Not Recovered/Not Resolved]
  - Fall [Recovered/Resolved]
  - Bedridden [Recovered/Resolved]
  - Respiratory tract infection [Recovering/Resolving]
  - Loss of personal independence in daily activities [Unknown]
  - Gait disturbance [Unknown]

NARRATIVE: CASE EVENT DATE: 20220101
